FAERS Safety Report 23452983 (Version 2)
Quarter: 2024Q1

REPORT INFORMATION
  Report Type: Spontaneous
  Country: US (occurrence: US)
  Receive Date: 20240129
  Receipt Date: 20240207
  Transmission Date: 20240410
  Serious: No
  Sender: FDA-Public Use
  Company Number: US-PFIZER INC-202400026110

PATIENT
  Age: 61 Year
  Sex: Female

DRUGS (1)
  1. IBRANCE [Suspect]
     Active Substance: PALBOCICLIB
     Dosage: 125 MG, CYCLIC (ON DAY 1 THROUGH 21 OF A 28 DAY CYCLE)
     Dates: start: 202309

REACTIONS (5)
  - Alopecia [Unknown]
  - Insomnia [Unknown]
  - Fatigue [Unknown]
  - Full blood count abnormal [Unknown]
  - Influenza [Unknown]
